FAERS Safety Report 8233284-2 (Version None)
Quarter: 2012Q1

REPORT INFORMATION
  Report Type: 
  Country: None (occurrence: None)
  Receive Date: 20120326
  Receipt Date: 20120319
  Transmission Date: 20120608
  Serious: Yes (Hospitalization)
  Sender: FDA-Public Use
  Company Number: US-BAYER-200939512NA

PATIENT
  Age: 25 Year
  Sex: Female
  Weight: 86.364 kg

DRUGS (14)
  1. YASMIN [Suspect]
     Indication: MENSTRUATION IRREGULAR
  2. UNKNOWN DRUG [Concomitant]
     Indication: ASTHMA
     Dosage: ONCE A YEAR
     Route: 055
  3. ALBUTEROL [Concomitant]
     Indication: ASTHMA
  4. YASMIN [Suspect]
     Indication: CONTRACEPTION
     Dosage: UNK
     Route: 048
     Dates: start: 20061101, end: 20090409
  5. YASMIN [Suspect]
     Indication: ACNE
  6. VITAMINS NOS [Concomitant]
  7. YAZ [Suspect]
     Indication: ACNE
     Dosage: UNK
     Route: 048
     Dates: start: 20060701, end: 20090401
  8. YAZ [Suspect]
     Indication: CONTRACEPTION
  9. AZITHROMYCIN [Concomitant]
     Dates: start: 20081101
  10. RETIN-A [Concomitant]
     Dates: start: 20051201, end: 20071201
  11. IBUPROFEN [Concomitant]
     Dates: start: 20051201, end: 20071201
  12. IBUPROFEN (ADVIL) [Concomitant]
     Dates: start: 20051201, end: 20071201
  13. YAZ [Suspect]
     Indication: MENSTRUATION IRREGULAR
  14. ACETAMINOPHEN [Concomitant]
     Dates: start: 20051201, end: 20071201

REACTIONS (9)
  - MUSCULAR WEAKNESS [None]
  - THROMBOSIS [None]
  - PULMONARY HYPERTENSION [None]
  - DEEP VEIN THROMBOSIS [None]
  - DYSPNOEA [None]
  - DIZZINESS [None]
  - PULMONARY EMBOLISM [None]
  - SINUS TACHYCARDIA [None]
  - COUGH [None]
